FAERS Safety Report 14269409 (Version 1)
Quarter: 2017Q4

REPORT INFORMATION
  Report Type: Other
  Country: IT (occurrence: IT)
  Receive Date: 20171211
  Receipt Date: 20171211
  Transmission Date: 20180321
  Serious: Yes (Other)
  Sender: FDA-Public Use
  Company Number: IT-ALSI-201700445

PATIENT
  Age: 46 Year
  Sex: Male

DRUGS (1)
  1. OSSIGENO AIR LIQUIDE SANITA^ GAS MEDICINALE COMPRESSO OXYGEN [Suspect]
     Active Substance: OXYGEN
     Indication: PRODUCT USED FOR UNKNOWN INDICATION
     Route: 065

REACTIONS (3)
  - Accident [Recovering/Resolving]
  - Erythema [Recovering/Resolving]
  - Skin wound [Recovering/Resolving]

NARRATIVE: CASE EVENT DATE: 20170918
